FAERS Safety Report 11319808 (Version 1)
Quarter: 2015Q3

REPORT INFORMATION
  Report Type: Spontaneous
  Country: US (occurrence: US)
  Receive Date: 20150729
  Receipt Date: 20150729
  Transmission Date: 20151125
  Serious: No
  Sender: FDA-Public Use
  Company Number: US-MYLANLABS-2014M1007622

PATIENT
  Sex: Male

DRUGS (1)
  1. BUSPIRONE HYDROCHLORIDE TABLETS, USP [Suspect]
     Active Substance: BUSPIRONE HYDROCHLORIDE
     Indication: ANXIETY
     Dosage: 5 MG, TID
     Route: 048

REACTIONS (2)
  - Teeth brittle [Recovered/Resolved]
  - Incorrect route of drug administration [Recovered/Resolved]
